FAERS Safety Report 17372886 (Version 2)
Quarter: 2020Q1

REPORT INFORMATION
  Report Type: Spontaneous
  Country: TR (occurrence: TR)
  Receive Date: 20200205
  Receipt Date: 20200213
  Transmission Date: 20200409
  Serious: Yes (Other)
  Sender: FDA-Public Use
  Company Number: TR-PFIZER INC-2020044860

PATIENT
  Age: 58 Year
  Sex: Female

DRUGS (12)
  1. METHYLPREDNISOLONE ACETATE. [Suspect]
     Active Substance: METHYLPREDNISOLONE ACETATE
     Indication: PAIN IN EXTREMITY
  2. SALINE [SODIUM CHLORIDE] [Suspect]
     Active Substance: SODIUM CHLORIDE
     Indication: BACK PAIN
     Dosage: 9 ML, UNK
  3. SALINE [SODIUM CHLORIDE] [Suspect]
     Active Substance: SODIUM CHLORIDE
     Indication: PAIN IN EXTREMITY
  4. BUPIVACAINE. [Suspect]
     Active Substance: BUPIVACAINE
     Indication: SPINAL ANAESTHESIA
  5. METHYLPREDNISOLONE ACETATE. [Suspect]
     Active Substance: METHYLPREDNISOLONE ACETATE
     Indication: SPINAL ANAESTHESIA
     Dosage: 1 ML, UNK
  6. METHYLPREDNISOLONE ACETATE. [Suspect]
     Active Substance: METHYLPREDNISOLONE ACETATE
     Indication: BACK PAIN
  7. BUPIVACAINE. [Suspect]
     Active Substance: BUPIVACAINE
     Indication: BACK PAIN
     Dosage: 20 ML, UNK
  8. LIDOCAINE. [Suspect]
     Active Substance: LIDOCAINE
     Indication: BACK PAIN
     Dosage: 10 ML, UNK
  9. SALINE [SODIUM CHLORIDE] [Suspect]
     Active Substance: SODIUM CHLORIDE
     Indication: SPINAL ANAESTHESIA
  10. BUPIVACAINE. [Suspect]
     Active Substance: BUPIVACAINE
     Indication: PAIN IN EXTREMITY
  11. LIDOCAINE. [Suspect]
     Active Substance: LIDOCAINE
     Indication: PAIN IN EXTREMITY
  12. LIDOCAINE. [Suspect]
     Active Substance: LIDOCAINE
     Indication: SPINAL ANAESTHESIA

REACTIONS (5)
  - Seizure [Recovered/Resolved]
  - Aphasia [Recovered/Resolved]
  - Apathy [Recovered/Resolved]
  - Loss of consciousness [Recovered/Resolved]
  - Local anaesthetic systemic toxicity [Recovered/Resolved]
